FAERS Safety Report 12940141 (Version 2)
Quarter: 2016Q4

REPORT INFORMATION
  Report Type: Spontaneous
  Country: GB (occurrence: GB)
  Receive Date: 20161115
  Receipt Date: 20161115
  Transmission Date: 20170207
  Serious: Yes (Other)
  Sender: FDA-Public Use
  Company Number: GB-ROCHE-1854239

PATIENT
  Age: 54 Year
  Sex: Female

DRUGS (1)
  1. XENICAL [Suspect]
     Active Substance: ORLISTAT
     Indication: OBESITY
     Route: 048
     Dates: start: 20161107

REACTIONS (4)
  - Lip pain [Unknown]
  - Blood glucose increased [Unknown]
  - Thirst [Unknown]
  - Erythema [Unknown]

NARRATIVE: CASE EVENT DATE: 20161111
